FAERS Safety Report 4918202-4 (Version None)
Quarter: 2006Q1

REPORT INFORMATION
  Report Type: 
  Country: None (occurrence: None)
  Receive Date: 20060113
  Receipt Date: 20051017
  Transmission Date: 20060701
  Serious: No
  Sender: FDA-Public Use
  Company Number: 2005SP003537

PATIENT
  Age: 71 Year
  Sex: Male
  Weight: 90.7194 kg

DRUGS (4)
  1. LUNESTA [Suspect]
     Dosage: 2 MG; HS; ORAL; SEE IMAGE
     Route: 048
     Dates: start: 20050901, end: 20050101
  2. LUNESTA [Suspect]
     Dosage: 2 MG; HS; ORAL; SEE IMAGE
     Route: 048
     Dates: start: 20050101
  3. FLOMAX [Concomitant]
  4. LYRCA [Concomitant]

REACTIONS (2)
  - DRUG INEFFECTIVE [None]
  - INSOMNIA [None]
